FAERS Safety Report 18119421 (Version 5)
Quarter: 2025Q2

REPORT INFORMATION
  Report Type: Report from Study
  Country: CO (occurrence: CO)
  Receive Date: 20200806
  Receipt Date: 20250620
  Transmission Date: 20250717
  Serious: Yes (Hospitalization, Other)
  Sender: NOVARTIS
  Company Number: CO-NOVARTISPH-NVSC2020CO218527

PATIENT
  Age: 58 Year
  Sex: Female
  Weight: 37 kg

DRUGS (7)
  1. TASIGNA [Suspect]
     Active Substance: NILOTINIB
     Indication: Chronic myeloid leukaemia
     Dosage: 400 MG, Q12H (2 OF 200, IN THE MORNING AND AT NIGHT)
     Route: 048
     Dates: start: 20180217
  2. TASIGNA [Suspect]
     Active Substance: NILOTINIB
     Route: 048
     Dates: start: 201802
  3. TASIGNA [Suspect]
     Active Substance: NILOTINIB
     Route: 048
     Dates: start: 20241216, end: 20250116
  4. TASIGNA [Suspect]
     Active Substance: NILOTINIB
     Dosage: 150 MG, BID (300 MG IN TOTAL) ONE OF 150 MG IN THE MORNING AND ONE OF 150 MG AT NIGHT / DOSE REDUCTI
     Route: 048
  5. TASIGNA [Suspect]
     Active Substance: NILOTINIB
     Dosage: 150 MG, BID (ONE OF 150 MG IN THE MORNING AND ONE OF 150 MG AT NIGHT)
     Route: 065
  6. TASIGNA [Suspect]
     Active Substance: NILOTINIB
     Dosage: 2 OF 150 MG/ 300 MG, Q12H
     Route: 048
  7. TASIGNA [Suspect]
     Active Substance: NILOTINIB
     Dosage: 300 MG, Q12H (150MG EVERY 12 HOURS)
     Route: 048
     Dates: start: 20250117

REACTIONS (6)
  - Pulmonary hypertension [Unknown]
  - Pyrexia [Recovered/Resolved]
  - Respiratory tract infection [Unknown]
  - Speech disorder [Recovered/Resolved]
  - Constipation [Recovered/Resolved]
  - Incorrect dose administered [Not Recovered/Not Resolved]

NARRATIVE: CASE EVENT DATE: 20241206
